FAERS Safety Report 9470768 (Version 2)
Quarter: 2015Q1

REPORT INFORMATION
  Report Type: Spontaneous
  Country: US (occurrence: US)
  Receive Date: 20130822
  Receipt Date: 20150306
  Transmission Date: 20150721
  Serious: Yes (Hospitalization, Congenital Anomaly, Other)
  Sender: FDA-Public Use
  Company Number: US-ELI_LILLY_AND_COMPANY-US201308005406

PATIENT
  Sex: Female

DRUGS (5)
  1. LITHIUM [Concomitant]
     Active Substance: LITHIUM CARBONATE
     Route: 064
  2. PROZAC [Suspect]
     Active Substance: FLUOXETINE HYDROCHLORIDE
     Indication: PRODUCT USED FOR UNKNOWN INDICATION
     Dosage: 1 DF, UNKNOWN
     Route: 064
  3. PAXIL [Concomitant]
     Active Substance: PAROXETINE HYDROCHLORIDE
     Route: 064
  4. MARIJUANA [Concomitant]
     Active Substance: CANNABIS SATIVA SUBSP. INDICA TOP
     Route: 064
  5. DEPAKOTE [Concomitant]
     Active Substance: DIVALPROEX SODIUM
     Route: 064

REACTIONS (13)
  - Adenoidal hypertrophy [Unknown]
  - Cleft lip and palate [Unknown]
  - Foetal exposure during pregnancy [Recovered/Resolved]
  - Velopharyngeal incompetence [Unknown]
  - Spina bifida [Unknown]
  - Respiratory distress [Recovered/Resolved]
  - Developmental delay [Unknown]
  - Tooth disorder [Unknown]
  - Premature delivery [Recovered/Resolved]
  - Speech disorder [Unknown]
  - Foetal distress syndrome [Recovered/Resolved]
  - Nasal septum deviation [Unknown]
  - Dysphagia [Unknown]
